FAERS Safety Report 24319490 (Version 3)
Quarter: 2024Q3

REPORT INFORMATION
  Report Type: Spontaneous
  Country: US (occurrence: US)
  Receive Date: 20240914
  Receipt Date: 20240924
  Transmission Date: 20241017
  Serious: Yes (Other)
  Sender: SANOFI AVENTIS
  Company Number: US-SANOFI-02208729

PATIENT
  Age: 60 Year
  Sex: Female

DRUGS (3)
  1. MULTAQ [Suspect]
     Active Substance: DRONEDARONE
     Indication: Fallot^s tetralogy
     Dosage: 400 MG, BID (, ONCE IN THE MORNING AND ONCE AT NIGHT WITH MEALS)
     Route: 048
  2. FUROSEMIDE [Concomitant]
     Active Substance: FUROSEMIDE
     Indication: Pleurisy
     Dosage: 20 MG (TAKING A FULL TABLET OF 20MG FOR 4 DAYS THEN STOPPED FOR 3 DAYS THEN REPEAT AGAIN)
     Route: 065
  3. FUROSEMIDE [Concomitant]
     Active Substance: FUROSEMIDE
     Dosage: 0.5 DF, QD (TAKING ONLY HALF A TABLET DAILY FOR 30 DAYS)
     Route: 065

REACTIONS (5)
  - Atrial fibrillation [Unknown]
  - Dyspnoea [Unknown]
  - Cough [Unknown]
  - Product use in unapproved indication [Unknown]
  - Drug ineffective [Unknown]
